FAERS Safety Report 10907908 (Version 2)
Quarter: 2016Q1

REPORT INFORMATION
  Report Type: Spontaneous
  Country: US (occurrence: US)
  Receive Date: 20150312
  Receipt Date: 20160120
  Transmission Date: 20160525
  Serious: No
  Sender: FDA-Public Use
  Company Number: US-INCYTE CORPORATION-2015IN000035

PATIENT
  Sex: Female
  Weight: 68 kg

DRUGS (19)
  1. FIORICET [Concomitant]
     Active Substance: ACETAMINOPHEN\BUTALBITAL\CAFFEINE
  2. MULTIVITAMIN AND MINERAL [Concomitant]
  3. DICLOFENAC [Concomitant]
     Active Substance: DICLOFENAC
  4. CLINDAMYCIN [Concomitant]
     Active Substance: CLINDAMYCIN\CLINDAMYCIN PHOSPHATE
  5. LASIX [Concomitant]
     Active Substance: FUROSEMIDE
  6. LEVOTHYROXINE. [Concomitant]
     Active Substance: LEVOTHYROXINE
  7. PRILOSEC [Concomitant]
     Active Substance: OMEPRAZOLE MAGNESIUM
  8. ZOCOR [Concomitant]
     Active Substance: SIMVASTATIN
  9. CALCIUM [Concomitant]
     Active Substance: CALCIUM
  10. KEPPRA [Concomitant]
     Active Substance: LEVETIRACETAM
  11. TYLENOL [Concomitant]
     Active Substance: ACETAMINOPHEN
  12. JAKAFI [Suspect]
     Active Substance: RUXOLITINIB
     Dosage: 10 MG, QD
     Route: 048
     Dates: start: 20150105
  13. ASPIRIN. [Concomitant]
     Active Substance: ASPIRIN
  14. NASONEX [Concomitant]
     Active Substance: MOMETASONE FUROATE
  15. JAKAFI [Suspect]
     Active Substance: RUXOLITINIB
     Indication: MYELOFIBROSIS
     Dosage: 10 MG, BID
     Route: 048
     Dates: start: 20141025
  16. WARFARIN [Concomitant]
     Active Substance: WARFARIN
  17. VITAMIN D3 [Concomitant]
     Active Substance: CHOLECALCIFEROL
  18. METOPROLOL. [Concomitant]
     Active Substance: METOPROLOL
  19. MICARDIS [Concomitant]
     Active Substance: TELMISARTAN

REACTIONS (4)
  - Dyspnoea [Unknown]
  - Headache [Unknown]
  - Platelet count increased [Unknown]
  - Migraine [Unknown]
